FAERS Safety Report 7687147-1 (Version None)
Quarter: 2011Q3

REPORT INFORMATION
  Report Type: 
  Country: None (occurrence: None)
  Receive Date: 20110816
  Receipt Date: 20110805
  Transmission Date: 20111222
  Serious: Yes (Hospitalization)
  Sender: FDA-Public Use
  Company Number: PHHO2011FR13555

PATIENT
  Sex: Female
  Weight: 55.3 kg

DRUGS (4)
  1. PREDNISOLONE [Concomitant]
     Indication: RENAL TRANSPLANT
     Dosage: 10 MG, UNK
     Route: 048
     Dates: start: 20101223
  2. CELLCEPT [Concomitant]
     Indication: RENAL TRANSPLANT
     Dosage: 2.5 MG, UNK
     Route: 048
     Dates: start: 20101223
  3. RAD 666 / RAD 001A [Suspect]
     Indication: RENAL TRANSPLANT
     Dosage: 4 MG, UNK
     Route: 048
     Dates: start: 20101223
  4. NEORAL [Suspect]
     Indication: RENAL TRANSPLANT
     Dosage: 70 MG, BID

REACTIONS (1)
  - LYMPHOCELE [None]
